FAERS Safety Report 6402280-X (Version None)
Quarter: 2009Q4

REPORT INFORMATION
  Report Type: 
  Country: None (occurrence: None)
  Receive Date: 20091015
  Receipt Date: 20091004
  Transmission Date: 20100525
  Serious: Yes (Other)
  Sender: FDA-Public Use
  Company Number: PHHY2009AT42951

PATIENT
  Sex: Female

DRUGS (2)
  1. ZOMETA [Suspect]
     Indication: BREAST CANCER METASTATIC
     Dosage: UNK
     Dates: start: 20080101
  2. ZOMETA [Suspect]
     Indication: METASTASES TO BONE

REACTIONS (2)
  - VISUAL FIELD DEFECT [None]
  - VISUAL IMPAIRMENT [None]
